FAERS Safety Report 6531623-1 (Version None)
Quarter: 2010Q1

REPORT INFORMATION
  Report Type: 
  Country: None (occurrence: None)
  Receive Date: 20100108
  Receipt Date: 20091229
  Transmission Date: 20100710
  Serious: Yes (Other)
  Sender: FDA-Public Use
  Company Number: US-PFIZER INC-2009308528

PATIENT
  Sex: Female
  Weight: 65.77 kg

DRUGS (5)
  1. CHANTIX [Suspect]
     Indication: SMOKING CESSATION THERAPY
     Dosage: 0.5 MG, 2X/DAY
     Dates: start: 20091114, end: 20091203
  2. HYDROCHLOROTHIAZIDE [Concomitant]
  3. AMLODIPINE BESILATE [Concomitant]
     Indication: HYPERTENSION
     Dosage: UNK
  4. ULTRAM [Concomitant]
     Dosage: UNK
  5. ALBUTEROL [Concomitant]

REACTIONS (4)
  - AGGRESSION [None]
  - ANGER [None]
  - HOSTILITY [None]
  - PERSONALITY CHANGE [None]
